FAERS Safety Report 4356095-7 (Version None)
Quarter: 2004Q2

REPORT INFORMATION
  Report Type: 
  Country: None (occurrence: None)
  Receive Date: 20040511
  Receipt Date: 20040330
  Transmission Date: 20050107
  Serious: Yes (Life-Threatening, Hospitalization)
  Sender: FDA-Public Use
  Company Number: 04US01863

PATIENT
  Age: 26 Year
  Sex: Female
  Weight: 50 kg

DRUGS (2)
  1. WELLBUTRIN [Suspect]
     Indication: DEPRESSION
     Dosage: 300MG IN THE MORNING
     Route: 048
     Dates: start: 20021024, end: 20040115
  2. KLONOPIN [Suspect]
     Indication: ANXIETY
     Dosage: 1MG THREE TIMES PER DAY
     Route: 065
     Dates: start: 20021024

REACTIONS (2)
  - CONVULSION [None]
  - DRUG INTERACTION [None]
